FAERS Safety Report 5181813-8 (Version None)
Quarter: 2006Q4

REPORT INFORMATION
  Report Type: 
  Country: None (occurrence: None)
  Receive Date: 20061220
  Receipt Date: 20061214
  Transmission Date: 20070319
  Serious: Yes (Other)
  Sender: FDA-Public Use
  Company Number: US-JNJFOC-20061204595

PATIENT
  Sex: Female
  Weight: 88.45 kg

DRUGS (11)
  1. TYLENOL (CAPLET) [Suspect]
  2. TYLENOL (CAPLET) [Suspect]
     Indication: ARTHRALGIA
  3. B 12 [Concomitant]
  4. COZAAR [Concomitant]
  5. FELODIPINE [Concomitant]
  6. SLO-K [Concomitant]
  7. VITAMINS [Concomitant]
  8. LITHIUM CARBONATE [Concomitant]
  9. PAXIL [Concomitant]
  10. SYNTHROID [Concomitant]
  11. PREMARIN [Concomitant]

REACTIONS (4)
  - DIZZINESS [None]
  - HYPOAESTHESIA [None]
  - INTENTIONAL DRUG MISUSE [None]
  - PAIN [None]
